FAERS Safety Report 8106451 (Version 3)
Quarter: 2015Q1

REPORT INFORMATION
  Report Type: Spontaneous
  Country: JP (occurrence: JP)
  Receive Date: 20110825
  Receipt Date: 20150324
  Transmission Date: 20150721
  Serious: Yes (Hospitalization, Other)
  Sender: FDA-Public Use
  Company Number: JP-PFIZER INC-2011191395

PATIENT
  Age: 67 Year
  Sex: Female
  Weight: 63 kg

DRUGS (13)
  1. SUTENT [Suspect]
     Active Substance: SUNITINIB MALATE
     Dosage: 37.5 MG, UNK
     Route: 048
     Dates: start: 20110802, end: 20110805
  2. AMLODIPINE [Concomitant]
     Active Substance: AMLODIPINE BESYLATE
     Indication: HYPERTENSION
     Dosage: 2.5 MG, 1X/DAY
     Route: 048
     Dates: start: 20090831
  3. LENDORMIN D [Concomitant]
     Active Substance: BROTIZOLAM
     Indication: INSOMNIA
     Dosage: 0.25 MG, 1X/DAY
     Route: 048
     Dates: start: 20100524
  4. LOXOPROFEN [Suspect]
     Active Substance: LOXOPROFEN
     Indication: CANCER PAIN
     Dosage: 60 MG, 3X/DAY
     Route: 048
     Dates: start: 20100629, end: 20110811
  5. MEVALOTIN [Concomitant]
     Active Substance: PRAVASTATIN SODIUM
     Indication: HYPERLIPIDAEMIA
     Dosage: 5 MG, 2X/DAY
     Route: 048
     Dates: start: 20100604
  6. THYRADIN-S [Concomitant]
     Active Substance: LEVOTHYROXINE
     Indication: HYPOTHYROIDISM
     Dosage: 100 UG, 1X/DAY
     Route: 048
     Dates: start: 20090511
  7. LASIX [Concomitant]
     Active Substance: FUROSEMIDE
     Indication: OEDEMA
     Dosage: 20 MG, 1X/DAY
     Route: 048
     Dates: start: 20090917, end: 20110809
  8. SELBEX [Concomitant]
     Active Substance: TEPRENONE
     Indication: GASTRITIS
     Dosage: 50 MG, 3X/DAY
     Route: 048
     Dates: start: 20100629, end: 20110811
  9. SUTENT [Suspect]
     Active Substance: SUNITINIB MALATE
     Indication: RENAL CELL CARCINOMA
     Dosage: 37.5 MG, 1X/DAY
     Route: 048
     Dates: start: 20090410, end: 20090607
  10. FERRUM [Concomitant]
     Active Substance: FERROUS FUMARATE
     Indication: ANAEMIA
     Dosage: 100 MG, 1X/DAY
     Route: 048
     Dates: start: 20090825, end: 20110811
  11. TSUKUSHI AM [Concomitant]
     Indication: GASTRITIS
     Dosage: 1.3 G, 3X/DAY
     Route: 048
     Dates: start: 20091215
  12. SUTENT [Suspect]
     Active Substance: SUNITINIB MALATE
     Dosage: UNK
     Route: 048
     Dates: start: 20090707, end: 20110711
  13. LASIX [Concomitant]
     Active Substance: FUROSEMIDE
     Dosage: 20 MG, 1X/DAY
     Route: 048
     Dates: start: 20110812

REACTIONS (8)
  - Pyrexia [Recovered/Resolved]
  - Generalised oedema [Recovered/Resolved]
  - Platelet count decreased [Recovered/Resolved]
  - Pyelonephritis [Unknown]
  - Renal cell carcinoma [Unknown]
  - Acute kidney injury [Recovering/Resolving]
  - Malaise [Recovered/Resolved]
  - Disease progression [Unknown]

NARRATIVE: CASE EVENT DATE: 201108
